FAERS Safety Report 23483070 (Version 1)
Quarter: 2024Q1

REPORT INFORMATION
  Report Type: Spontaneous
  Country: US (occurrence: US)
  Receive Date: 20240205
  Receipt Date: 20240205
  Transmission Date: 20240410
  Serious: Yes (Hospitalization)
  Sender: FDA-Public Use
  Company Number: US-PFIZER INC-202400030832

PATIENT
  Age: 66 Year
  Sex: Male

DRUGS (1)
  1. OXBRYTA [Suspect]
     Active Substance: VOXELOTOR
     Dosage: 1500 MG DAILY, ORAL
     Route: 048

REACTIONS (1)
  - Sickle cell disease [Not Recovered/Not Resolved]
